FAERS Safety Report 17376352 (Version 1)
Quarter: 2020Q1

REPORT INFORMATION
  Report Type: Spontaneous
  Country: US (occurrence: US)
  Receive Date: 20200122
  Receipt Date: 20200122
  Transmission Date: 20200409
  Serious: No
  Sender: FDA-Public Use
  Company Number: None

PATIENT
  Age: 70 Year
  Sex: Female
  Weight: 86.18 kg

DRUGS (4)
  1. JARDIANCE [Suspect]
     Active Substance: EMPAGLIFLOZIN
     Indication: TYPE 2 DIABETES MELLITUS
     Dosage: ?          QUANTITY:1 PILL PER DAY;?
     Route: 048
     Dates: start: 20180607, end: 20180707
  2. CENTRUM SILVER VITAMIN [Concomitant]
  3. TURMERIC [Concomitant]
     Active Substance: HERBALS\TURMERIC
  4. CURCUMIB [Concomitant]

REACTIONS (2)
  - Vulvovaginal pruritus [None]
  - Urinary incontinence [None]

NARRATIVE: CASE EVENT DATE: 20180707
